FAERS Safety Report 12111351 (Version 1)
Quarter: 2016Q1

REPORT INFORMATION
  Report Type: Spontaneous
  Country: US (occurrence: US)
  Receive Date: 20160224
  Receipt Date: 20160224
  Transmission Date: 20160526
  Serious: No
  Sender: FDA-Public Use
  Company Number: US-JAZZ-2015-US-007782

PATIENT
  Age: 51 Year
  Sex: Female

DRUGS (12)
  1. PRIALT [Suspect]
     Active Substance: ZICONOTIDE ACETATE
     Dosage: 0.065 ?G, QH
     Route: 037
     Dates: start: 20131209, end: 20131230
  2. PRIALT [Suspect]
     Active Substance: ZICONOTIDE ACETATE
     Dosage: 0.05 ?G, QH
     Route: 037
     Dates: start: 20140110, end: 20140127
  3. KLONOPIN [Concomitant]
     Active Substance: CLONAZEPAM
  4. EFFEXOR [Concomitant]
     Active Substance: VENLAFAXINE HYDROCHLORIDE
  5. PRIALT [Suspect]
     Active Substance: ZICONOTIDE ACETATE
     Indication: PAIN
     Dosage: 0.058 ?G, QH
     Route: 037
     Dates: start: 20131118, end: 20131126
  6. PRIALT [Suspect]
     Active Substance: ZICONOTIDE ACETATE
     Dosage: 0.071 ?G, QH
     Route: 037
     Dates: start: 20131126, end: 20131209
  7. ROBAXIN [Concomitant]
     Active Substance: METHOCARBAMOL
  8. PERCOCET [Concomitant]
     Active Substance: ACETAMINOPHEN\OXYCODONE HYDROCHLORIDE
  9. ZANAFLEX [Concomitant]
     Active Substance: TIZANIDINE HYDROCHLORIDE
  10. TOPAMAX [Concomitant]
     Active Substance: TOPIRAMATE
  11. GABAPENTIN. [Concomitant]
     Active Substance: GABAPENTIN
  12. PRIALT [Suspect]
     Active Substance: ZICONOTIDE ACETATE
     Indication: POST LAMINECTOMY SYNDROME
     Dosage: 0.05 ?G, QH
     Route: 037
     Dates: start: 20131111, end: 20131118

REACTIONS (2)
  - Hypersensitivity [Recovered/Resolved]
  - Headache [Recovered/Resolved]

NARRATIVE: CASE EVENT DATE: 201312
